FAERS Safety Report 5315386-3 (Version None)
Quarter: 2007Q2

REPORT INFORMATION
  Report Type: 
  Country: None (occurrence: None)
  Receive Date: 20070503
  Receipt Date: 20070424
  Transmission Date: 20071010
  Serious: Yes (Hospitalization)
  Sender: FDA-Public Use
  Company Number: JP-JNJFOC-20070400874

PATIENT
  Sex: Female
  Weight: 75 kg

DRUGS (19)
  1. REMICADE [Suspect]
     Route: 042
  2. REMICADE [Suspect]
     Route: 042
  3. REMICADE [Suspect]
     Route: 042
  4. REMICADE [Suspect]
     Route: 042
  5. REMICADE [Suspect]
     Route: 042
  6. REMICADE [Suspect]
     Route: 042
  7. REMICADE [Suspect]
     Route: 042
  8. REMICADE [Suspect]
     Route: 042
  9. REMICADE [Suspect]
     Route: 042
  10. REMICADE [Suspect]
     Indication: RHEUMATOID ARTHRITIS
     Route: 042
  11. RHEUMATREX [Suspect]
     Indication: RHEUMATOID ARTHRITIS
     Route: 048
  12. AZULFIDINE EN-TABS [Suspect]
     Indication: RHEUMATOID ARTHRITIS
     Route: 048
  13. BREDININ [Suspect]
     Indication: RHEUMATOID ARTHRITIS
     Route: 048
  14. PREDONINE [Suspect]
     Route: 048
  15. PREDONINE [Suspect]
     Indication: RHEUMATOID ARTHRITIS
     Route: 048
  16. LASIX [Concomitant]
     Indication: HYPERTENSION
     Route: 048
     Dates: end: 20070104
  17. DIOVAN [Concomitant]
     Indication: HYPERTENSION
     Route: 048
     Dates: end: 20070104
  18. MOBIC [Concomitant]
     Indication: RHEUMATOID ARTHRITIS
     Route: 048
  19. BONALON [Concomitant]
     Indication: RHEUMATOID ARTHRITIS
     Route: 048
     Dates: end: 20070104

REACTIONS (1)
  - BILE DUCT CANCER [None]
